FAERS Safety Report 7488622-5 (Version None)
Quarter: 2011Q2

REPORT INFORMATION
  Report Type: 
  Country: None (occurrence: None)
  Receive Date: 20110518
  Receipt Date: 20110510
  Transmission Date: 20111010
  Serious: Yes (Hospitalization)
  Sender: FDA-Public Use
  Company Number: A0833915A

PATIENT
  Age: 66 Year
  Sex: Male
  Weight: 88.6 kg

DRUGS (10)
  1. ZETIA [Concomitant]
  2. ACCUPRIL [Concomitant]
  3. AVANDIA [Suspect]
     Indication: DIABETES MELLITUS
     Dosage: 4MG TWICE PER DAY
     Route: 048
  4. GLUCOPHAGE [Concomitant]
  5. AMARYL [Concomitant]
  6. NORVASC [Concomitant]
  7. FLOMAX [Concomitant]
  8. ATACAND [Concomitant]
  9. ZIAC [Concomitant]
  10. INSULIN [Concomitant]

REACTIONS (4)
  - MYOCARDIAL INFARCTION [None]
  - ARRHYTHMIA [None]
  - ATRIAL FIBRILLATION [None]
  - CORONARY ARTERY DISEASE [None]
